FAERS Safety Report 6261493-0 (Version None)
Quarter: 2009Q3

REPORT INFORMATION
  Report Type: 
  Country: None (occurrence: None)
  Receive Date: 20090709
  Receipt Date: 20090708
  Transmission Date: 20100115
  Serious: Yes (Other)
  Sender: FDA-Public Use
  Company Number: US-B.I. PHARMACEUTICALS,INC./RIDGEFIELD-2009-BP-02377BP

PATIENT
  Sex: Male

DRUGS (7)
  1. SPIRIVA [Suspect]
     Indication: CHRONIC OBSTRUCTIVE PULMONARY DISEASE
     Dosage: 18 MCG
     Route: 055
     Dates: start: 20090102
  2. SPIRIVA [Suspect]
     Indication: DYSPNOEA
  3. NORVASC [Concomitant]
     Indication: HYPERTENSION
     Dosage: 10 MG
     Route: 048
     Dates: start: 20081110, end: 20090115
  4. EXFORGE [Concomitant]
     Dates: start: 20090118, end: 20090120
  5. VIAGRA [Concomitant]
     Dosage: 100 MG
     Route: 048
     Dates: start: 20081110, end: 20081110
  6. ASPIRIN [Concomitant]
     Dosage: 81 MG
     Route: 048
     Dates: start: 20081110
  7. CELEBREX [Concomitant]
     Dosage: 200 MG
     Route: 048
     Dates: start: 20081113

REACTIONS (5)
  - ABDOMINAL PAIN [None]
  - CHEST PAIN [None]
  - DRUG INEFFECTIVE [None]
  - DYSPNOEA [None]
  - PAIN [None]
